FAERS Safety Report 6207245-9 (Version None)
Quarter: 2009Q2

REPORT INFORMATION
  Report Type: 
  Country: None (occurrence: None)
  Receive Date: 20090528
  Receipt Date: 20090522
  Transmission Date: 20091009
  Serious: Yes (Hospitalization)
  Sender: FDA-Public Use
  Company Number: CA-PFIZER INC-2008087726

PATIENT
  Age: 57 Year

DRUGS (19)
  1. MARAVIROC [Suspect]
     Indication: HIV INFECTION
     Dosage: 150 MG, 2X/DAY
     Route: 048
     Dates: start: 20070710, end: 20081010
  2. MARAVIROC [Suspect]
     Dosage: 600 MG, 2X/DAY
     Route: 048
     Dates: start: 20081010
  3. DARUNAVIR [Interacting]
     Indication: HIV INFECTION
     Dosage: 600 MG, 2X/DAY
     Route: 048
     Dates: start: 20070710, end: 20081010
  4. RITONAVIR [Interacting]
     Indication: HIV INFECTION
     Dosage: 100 MG, 2X/DAY
     Route: 048
     Dates: start: 20070710, end: 20081010
  5. ETRAVIRINE [Concomitant]
     Indication: HIV INFECTION
     Route: 048
     Dates: start: 20070710
  6. RALTEGRAVIR [Concomitant]
     Indication: HIV INFECTION
     Route: 048
     Dates: start: 20070710
  7. LAMIVUDINE [Concomitant]
     Indication: HIV INFECTION
     Route: 048
     Dates: start: 20070710
  8. NITRO-DUR [Concomitant]
     Dosage: UNK
     Route: 061
     Dates: start: 20080826
  9. NITROGLYCERIN [Concomitant]
     Dosage: UNK
     Route: 048
     Dates: start: 20080826
  10. BISOPROLOL [Concomitant]
     Dosage: UNK
     Route: 048
     Dates: start: 20081012
  11. PLAVIX [Concomitant]
     Dosage: UNK
     Route: 048
     Dates: start: 20081005
  12. LASIX [Concomitant]
     Dosage: UNK
     Route: 048
     Dates: start: 20081005
  13. PROCTOSEDYL OINTMENT ^ROCHE^ [Concomitant]
     Dosage: UNK
     Route: 061
     Dates: start: 20080807
  14. METFORMIN [Concomitant]
     Dosage: UNK
     Route: 048
     Dates: start: 20080826
  15. PERINDOPRIL ERBUMINE [Concomitant]
     Dosage: UNK
     Dates: start: 20080801
  16. ASPIRIN [Concomitant]
     Dosage: UNK
     Route: 048
     Dates: start: 20040601
  17. PANTOLOC ^BYK MADAUS^ [Concomitant]
     Dosage: UNK
     Route: 048
     Dates: start: 20010101
  18. LIPIDIL [Concomitant]
     Dosage: UNK
     Route: 048
     Dates: start: 20080801
  19. CRESTOR [Concomitant]
     Dosage: UNK
     Route: 048
     Dates: start: 20080801

REACTIONS (1)
  - MYOCARDIAL INFARCTION [None]
